FAERS Safety Report 6670174-0 (Version None)
Quarter: 2010Q2

REPORT INFORMATION
  Report Type: 
  Country: None (occurrence: None)
  Receive Date: 20100406
  Receipt Date: 20100304
  Transmission Date: 20101027
  Serious: No
  Sender: FDA-Public Use
  Company Number: US-ALLERGAN-1002934US

PATIENT
  Age: 50 Year
  Sex: Female

DRUGS (1)
  1. LATISSE [Suspect]
     Indication: HYPOTRICHOSIS
     Dosage: 1 GTT, QHS
     Dates: start: 20100228, end: 20100303

REACTIONS (6)
  - ERYTHEMA [None]
  - EYE PRURITUS [None]
  - EYE SWELLING [None]
  - SKIN EXFOLIATION [None]
  - URTICARIA [None]
  - WRONG TECHNIQUE IN DRUG USAGE PROCESS [None]
